FAERS Safety Report 5352325-3 (Version None)
Quarter: 2007Q2

REPORT INFORMATION
  Report Type: 
  Country: None (occurrence: None)
  Receive Date: 20070611
  Receipt Date: 20070607
  Transmission Date: 20071010
  Serious: Yes (Other)
  Sender: FDA-Public Use
  Company Number: AU-BRISTOL-MYERS SQUIBB COMPANY-13803630

PATIENT
  Age: 55 Year
  Sex: Female
  Weight: 112 kg

DRUGS (4)
  1. TAXOL [Suspect]
     Indication: BREAST CANCER
     Route: 042
     Dates: start: 20070202, end: 20070202
  2. AVAPRO [Concomitant]
     Route: 048
  3. LEVOTHYROXINE SODIUM [Concomitant]
     Route: 048
  4. ALDACTONE [Concomitant]
     Route: 048

REACTIONS (1)
  - SWELLING [None]
